FAERS Safety Report 8545580 (Version 8)
Quarter: 2014Q1

REPORT INFORMATION
  Report Type: Spontaneous
  Country: US (occurrence: US)
  Receive Date: 20120503
  Receipt Date: 20140321
  Transmission Date: 20141002
  Serious: Yes (Hospitalization)
  Sender: FDA-Public Use
  Company Number: US-JNJFOC-20120413765

PATIENT
  Age: 54 Year
  Sex: Male
  Weight: 153.6 kg

DRUGS (17)
  1. MOTRIN [Suspect]
     Route: 048
  2. MOTRIN [Suspect]
     Indication: LUMBAR SPINAL STENOSIS
     Route: 048
     Dates: start: 201102, end: 20120415
  3. AN UNKNOWN MEDICATION [Suspect]
     Indication: DIABETIC NEUROPATHY
     Route: 048
     Dates: start: 20120328, end: 20120417
  4. VICODIN [Concomitant]
     Indication: LUMBAR SPINAL STENOSIS
     Route: 048
     Dates: start: 20120419
  5. PREVACID [Concomitant]
     Indication: GASTRITIS
     Route: 048
     Dates: start: 20120419
  6. SIMVASTATIN [Concomitant]
     Indication: BLOOD CHOLESTEROL INCREASED
     Route: 048
     Dates: start: 20120419
  7. SIMVASTATIN [Concomitant]
     Indication: BLOOD CHOLESTEROL INCREASED
     Route: 048
     Dates: start: 2010, end: 20120419
  8. METOPROLOL [Concomitant]
     Indication: HYPERTENSION
     Route: 048
     Dates: start: 20120419
  9. METOPROLOL [Concomitant]
     Indication: HYPERTENSION
     Route: 048
     Dates: start: 201102, end: 20120419
  10. LISINOPRIL [Concomitant]
     Indication: HYPERTENSION
     Route: 048
     Dates: start: 20120419
  11. LISINOPRIL [Concomitant]
     Indication: HYPERTENSION
     Route: 048
     Dates: start: 201102, end: 20120419
  12. METFORMIN [Concomitant]
     Indication: DIABETES MELLITUS
     Route: 048
     Dates: start: 2005
  13. GLYBURIDE [Concomitant]
     Indication: DIABETES MELLITUS
     Route: 048
     Dates: start: 2005
  14. AMBIEN [Concomitant]
     Indication: INSOMNIA
     Route: 048
     Dates: start: 20120419
  15. SEROQUEL XR [Concomitant]
     Indication: DEPRESSION
     Route: 048
     Dates: start: 20120419
  16. LANTUS [Concomitant]
     Indication: DIABETES MELLITUS
     Dosage: 30 UNITS
     Route: 058
     Dates: start: 20120419
  17. HUMALOG [Concomitant]
     Indication: DIABETES MELLITUS
     Dosage: 40 UNITS
     Route: 058
     Dates: start: 20120419

REACTIONS (3)
  - Gastritis [Recovered/Resolved]
  - Cerebrovascular accident [Recovered/Resolved]
  - Gastrooesophageal reflux disease [Unknown]
